FAERS Safety Report 9046167 (Version 1)
Quarter: 2013Q1

REPORT INFORMATION
  Report Type: Spontaneous
  Country: ES (occurrence: ES)
  Receive Date: 20130201
  Receipt Date: 20130201
  Transmission Date: 20140127
  Serious: Yes (Other)
  Sender: FDA-Public Use
  Company Number: PHHY2012ES113048

PATIENT
  Age: 53 Year
  Sex: Female

DRUGS (1)
  1. GLIVEC [Suspect]
     Indication: CHRONIC MYELOID LEUKAEMIA
     Dosage: 400 MG, QD
     Route: 048
     Dates: start: 20120816, end: 20130110

REACTIONS (8)
  - Pharyngeal inflammation [Recovered/Resolved]
  - Mucosal ulceration [Recovered/Resolved]
  - Mucosal exfoliation [Recovered/Resolved]
  - Mucosal inflammation [Recovered/Resolved]
  - Toxic skin eruption [Recovering/Resolving]
  - Odynophagia [Recovered/Resolved]
  - Pruritus generalised [Recovered/Resolved]
  - Dermatitis exfoliative [Recovered/Resolved]
